FAERS Safety Report 18766652 (Version 1)
Quarter: 2021Q1

REPORT INFORMATION
  Report Type: Other
  Country: CN (occurrence: CN)
  Receive Date: 20210121
  Receipt Date: 20210121
  Transmission Date: 20210419
  Serious: Yes (Other)
  Sender: FDA-Public Use
  Company Number: CN-ROCHE-2748875

PATIENT

DRUGS (1)
  1. BEVACIZUMAB. [Suspect]
     Active Substance: BEVACIZUMAB
     Indication: NON-SMALL CELL LUNG CANCER
     Dosage: A COURSE OF TREATMENT CONSISTS OF REPEATING 4 CYCLES OF CHEMOTHERAPY WITHIN 2 WEEKS, AND EACH CYCLE
     Route: 041

REACTIONS (1)
  - Cardiotoxicity [Unknown]
